FAERS Safety Report 23452997 (Version 2)
Quarter: 2025Q3

REPORT INFORMATION
  Report Type: Report from Study
  Country: RU (occurrence: RU)
  Receive Date: 20240129
  Receipt Date: 20250910
  Transmission Date: 20251021
  Serious: Yes (Life-Threatening, Hospitalization)
  Sender: ASCEND THERAPEUTICS US, LLC
  Company Number: RU-Ascend Therapeutics US, LLC-2152237

PATIENT
  Age: 43 Year
  Sex: Female
  Weight: 88 kg

DRUGS (4)
  1. ESTROGEL [Suspect]
     Active Substance: ESTRADIOL
     Indication: Assisted reproductive technology
     Dates: start: 20231009, end: 2023
  2. ESTRADIOL [Suspect]
     Active Substance: ESTRADIOL
     Dates: start: 20231009, end: 2023
  3. ESTRADIOL [Suspect]
     Active Substance: ESTRADIOL
     Dates: start: 2023, end: 20231115
  4. ESTRADIOL [Suspect]
     Active Substance: ESTRADIOL
     Dates: start: 2023, end: 2023

REACTIONS (1)
  - Ectopic pregnancy [Recovered/Resolved with Sequelae]
